FAERS Safety Report 9563994 (Version 1)
Quarter: 2013Q3

REPORT INFORMATION
  Report Type: Spontaneous
  Country: US (occurrence: US)
  Receive Date: 20130928
  Receipt Date: 20130928
  Transmission Date: 20140515
  Serious: No
  Sender: FDA-Public Use
  Company Number: US-009507513-1309USA010046

PATIENT
  Sex: Female

DRUGS (5)
  1. JANUVIA [Suspect]
     Indication: TYPE 2 DIABETES MELLITUS
     Dosage: 100 MG, QD
     Route: 048
     Dates: end: 2013
  2. JANUMET [Suspect]
     Dosage: 50/500 MG STRENGTH, BID
     Route: 048
     Dates: end: 2013
  3. KOMBIGLYZE XR [Suspect]
     Dosage: 1000 MG , QD
     Dates: end: 201303
  4. METFORMIN [Suspect]
     Dosage: 500 MG, BID
     Dates: end: 2013
  5. CRESTOR [Concomitant]
     Dosage: 10 MG , QD

REACTIONS (1)
  - Diarrhoea [Recovered/Resolved]
